FAERS Safety Report 25794137 (Version 1)
Quarter: 2025Q3

REPORT INFORMATION
  Report Type: Report from Study
  Country: US (occurrence: US)
  Receive Date: 20250912
  Receipt Date: 20250912
  Transmission Date: 20251020
  Serious: No
  Sender: SUNOVION
  Company Number: US-SUMITOMO PHARMA SWITZERLAND GMBH-2025SPA011430

PATIENT
  Age: 65 Year
  Sex: Male

DRUGS (10)
  1. ORGOVYX [Suspect]
     Active Substance: RELUGOLIX
     Indication: Prostate cancer
     Route: 048
  2. ORGOVYX [Suspect]
     Active Substance: RELUGOLIX
     Route: 048
  3. AZATHIOPRINE [Concomitant]
     Active Substance: AZATHIOPRINE
  4. SILDENAFIL [Concomitant]
     Active Substance: SILDENAFIL
  5. SUMATRIPTAN [Concomitant]
     Active Substance: SUMATRIPTAN
  6. VALACYCLOVIR [Concomitant]
     Active Substance: VALACYCLOVIR HYDROCHLORIDE
  7. BUDESONIDE\FORMOTEROL [Concomitant]
     Active Substance: BUDESONIDE\FORMOTEROL
  8. IBUPROFEN [Concomitant]
     Active Substance: IBUPROFEN
  9. Dulcolax [Concomitant]
  10. POLYETHYLENE GLYCOL 3350 [Concomitant]
     Active Substance: POLYETHYLENE GLYCOL 3350

REACTIONS (5)
  - Muscular weakness [Unknown]
  - Peripheral coldness [Unknown]
  - Dizziness [Unknown]
  - Diarrhoea [Unknown]
  - Hot flush [Unknown]
